FAERS Safety Report 9379324 (Version 2)
Quarter: 2013Q3

REPORT INFORMATION
  Report Type: Spontaneous
  Country: US (occurrence: None)
  Receive Date: 20130626
  Receipt Date: 20130729
  Transmission Date: 20140515
  Serious: Yes (Death)
  Sender: FDA-Public Use
  Company Number: UTC-034312

PATIENT
  Age: 69 Year
  Sex: Female
  Weight: 82.7 kg

DRUGS (1)
  1. REMODULIN (10 MILLIGRAM/MILLILITERS, INJECTION FOR INFUSION) (TREPROSTINIL SODIUM) [Suspect]
     Indication: PULMONARY ARTERIAL HYPERTENSION
     Dosage: 144 UG/KG (0.1 UG/KG, 1 IN 1 MIN), SUBCUTANEOUS
     Dates: start: 20120404

REACTIONS (2)
  - Death [None]
  - Subdural haematoma [None]
